FAERS Safety Report 24131668 (Version 1)
Quarter: 2024Q3

REPORT INFORMATION
  Report Type: Spontaneous
  Country: US (occurrence: None)
  Receive Date: 20240723
  Receipt Date: 20240723
  Transmission Date: 20241017
  Serious: Yes (Other)
  Sender: Public
  Company Number: None

PATIENT
  Age: 42 Year
  Sex: Female
  Weight: 81 kg

DRUGS (3)
  1. ACCUTANE [Suspect]
     Active Substance: ISOTRETINOIN
     Dates: start: 20240207, end: 20240408
  2. ZYRTEC [Concomitant]
     Active Substance: CETIRIZINE HYDROCHLORIDE
  3. COLLAGEN [Concomitant]
     Active Substance: COLLAGEN

REACTIONS (5)
  - Product prescribing error [None]
  - Eye swelling [None]
  - Frustration tolerance decreased [None]
  - Blepharitis [None]
  - Dry eye [None]

NARRATIVE: CASE EVENT DATE: 20240301
